FAERS Safety Report 9454465 (Version 2)
Quarter: 2013Q3

REPORT INFORMATION
  Report Type: Spontaneous
  Country: US (occurrence: US)
  Receive Date: 20130812
  Receipt Date: 20130918
  Transmission Date: 20140515
  Serious: Yes (Other)
  Sender: FDA-Public Use
  Company Number: US-FRI-1000047662

PATIENT
  Age: 66 Year
  Sex: Female
  Weight: 78.4 kg

DRUGS (10)
  1. TUDORZA PRESSAIR [Suspect]
     Indication: CHRONIC OBSTRUCTIVE PULMONARY DISEASE
     Dosage: 800 MCG
     Route: 055
     Dates: start: 20130718, end: 20130803
  2. TUDORZA PRESSAIR [Suspect]
     Indication: DYSPNOEA
  3. ALLEGRA [Concomitant]
     Dosage: AS NEEDED
  4. CALCIUM [Concomitant]
  5. MAGNESIUM [Concomitant]
  6. CO Q10 [Concomitant]
  7. FISH OIL [Concomitant]
  8. GLUTAMINE [Concomitant]
  9. PROVENTIL [Concomitant]
  10. REMICADE [Concomitant]
     Indication: CROHN^S DISEASE
     Dosage: EVERY 8 WEEKS
     Route: 042

REACTIONS (2)
  - Urinary retention [Recovered/Resolved]
  - Abdominal pain [Recovered/Resolved]
